FAERS Safety Report 5376712-2 (Version None)
Quarter: 2007Q3

REPORT INFORMATION
  Report Type: 
  Country: None (occurrence: None)
  Receive Date: 20070703
  Receipt Date: 20070625
  Transmission Date: 20080115
  Serious: Yes (Other)
  Sender: FDA-Public Use
  Company Number: ESWYE938729JUN07

PATIENT
  Age: 49 Year
  Sex: Female

DRUGS (2)
  1. DOBUPAL RETARD [Suspect]
     Indication: DEPRESSION
     Route: 048
     Dates: start: 20070622, end: 20070623
  2. DORKEN [Concomitant]
     Route: 048

REACTIONS (5)
  - AGITATION [None]
  - DEREALISATION [None]
  - DISSOCIATION [None]
  - IRRITABILITY [None]
  - RESTLESSNESS [None]
